FAERS Safety Report 24818808 (Version 1)
Quarter: 2025Q1

REPORT INFORMATION
  Report Type: Spontaneous
  Country: CA (occurrence: CA)
  Receive Date: 20250108
  Receipt Date: 20250108
  Transmission Date: 20250408
  Serious: Yes (Hospitalization)
  Sender: BAXTER
  Company Number: CA-BAXTER-2025BAX009930

PATIENT
  Age: 21 Year
  Sex: Male

DRUGS (2)
  1. ACETAMINOPHEN [Suspect]
     Active Substance: ACETAMINOPHEN
     Route: 065
  2. SODIUM CHLORIDE [Suspect]
     Active Substance: SODIUM CHLORIDE
     Indication: Brain oedema
     Route: 065

REACTIONS (7)
  - Toxicity to various agents [Recovered/Resolved]
  - Hepatic failure [Recovered/Resolved]
  - Agitation [Recovered/Resolved]
  - Hepatic encephalopathy [Recovered/Resolved]
  - Mydriasis [Recovered/Resolved]
  - Brain oedema [Recovered/Resolved]
  - Brain herniation [Recovered/Resolved]
